FAERS Safety Report 4394657-1 (Version None)
Quarter: 2004Q3

REPORT INFORMATION
  Report Type: 
  Country: None (occurrence: None)
  Receive Date: 20040707
  Receipt Date: 20040621
  Transmission Date: 20050211
  Serious: Yes (Other)
  Sender: FDA-Public Use
  Company Number: US-JNJFOC-20040104612

PATIENT
  Age: 49 Year
  Sex: Male
  Weight: 87.5442 kg

DRUGS (5)
  1. REMICADE [Suspect]
     Indication: CROHN'S DISEASE
     Dosage: SEE IMAGE
     Route: 042
     Dates: start: 20011101
  2. REMICADE [Suspect]
     Indication: CROHN'S DISEASE
     Dosage: SEE IMAGE
     Route: 042
     Dates: start: 20031201
  3. ASACOL [Concomitant]
  4. STARLIX [Concomitant]
  5. AVANDIA [Concomitant]

REACTIONS (3)
  - ATHEROSCLEROSIS [None]
  - HEART SOUNDS ABNORMAL [None]
  - MYOCARDIAL INFARCTION [None]
